FAERS Safety Report 9693019 (Version 1)
Quarter: 2013Q4

REPORT INFORMATION
  Report Type: Spontaneous
  Country: US (occurrence: None)
  Receive Date: 20131115
  Receipt Date: 20131115
  Transmission Date: 20140711
  Serious: Yes (Other)
  Sender: FDA-Public Use
  Company Number: None

PATIENT
  Age: 63 Year
  Sex: Female

DRUGS (6)
  1. PREDNISONE [Suspect]
     Indication: GLOMERULONEPHRITIS
     Route: 048
     Dates: start: 20130914
  2. ASPIRIN [Concomitant]
  3. PREDNISONE [Concomitant]
  4. ATORVASTATIN [Concomitant]
  5. BENAZEPRIL [Concomitant]
  6. SULFAMETH/TRIMETHOPRIM [Concomitant]

REACTIONS (20)
  - Back pain [None]
  - Pain in extremity [None]
  - Abasia [None]
  - Insomnia [None]
  - Fluid retention [None]
  - Fat redistribution [None]
  - Swelling face [None]
  - Abdominal distension [None]
  - Cough [None]
  - Nasal inflammation [None]
  - Contusion [None]
  - Impaired healing [None]
  - Thirst [None]
  - Burning sensation [None]
  - Pain in extremity [None]
  - Pain in extremity [None]
  - Facial pain [None]
  - Spinal pain [None]
  - Neck pain [None]
  - Back pain [None]
